FAERS Safety Report 23510290 (Version 1)
Quarter: 2024Q1

REPORT INFORMATION
  Report Type: Spontaneous
  Country: US (occurrence: US)
  Receive Date: 20240211
  Receipt Date: 20240211
  Transmission Date: 20240410
  Serious: No
  Sender: FDA-Public Use
  Company Number: US-AIMMUNE THERAPEUTICS, INC.-2023AIMT00132

PATIENT

DRUGS (13)
  1. PALFORZIA [Suspect]
     Active Substance: PEANUT
     Indication: Food allergy
     Dosage: IDE (0.5MG-6MG), ONCE
     Route: 048
     Dates: start: 20221031, end: 20221031
  2. PALFORZIA [Suspect]
     Active Substance: PEANUT
     Dosage: 20 MG, 1X/DAY
     Route: 048
     Dates: start: 20230123, end: 20230214
  3. PALFORZIA [Suspect]
     Active Substance: PEANUT
     Dosage: 20 MG, ONCE, LAST DOSE PRIOR ABDOMINAL PAIN AND DISCOMFORT
     Route: 048
     Dates: start: 2023, end: 2023
  4. PALFORZIA [Suspect]
     Active Substance: PEANUT
     Dosage: 20 MG, ONCE, LAST DOSE PRIOR VOMITING AND PRODUCT MISUSE
     Route: 048
     Dates: start: 20230213, end: 20230213
  5. PEPCID [Concomitant]
     Active Substance: FAMOTIDINE
     Indication: Abdominal pain
  6. PEPCID [Concomitant]
     Active Substance: FAMOTIDINE
     Indication: Abdominal discomfort
  7. PEPCID [Concomitant]
     Active Substance: FAMOTIDINE
     Indication: Vomiting
  8. TUMS [Concomitant]
     Active Substance: CALCIUM CARBONATE
     Indication: Abdominal pain
  9. TUMS [Concomitant]
     Active Substance: CALCIUM CARBONATE
     Indication: Abdominal discomfort
  10. TUMS [Concomitant]
     Active Substance: CALCIUM CARBONATE
     Indication: Vomiting
  11. BENADRYL [Concomitant]
     Active Substance: DIPHENHYDRAMINE HYDROCHLORIDE
     Indication: Abdominal pain
     Dosage: UNK
     Dates: start: 20230213, end: 20230213
  12. BENADRYL [Concomitant]
     Active Substance: DIPHENHYDRAMINE HYDROCHLORIDE
     Indication: Abdominal discomfort
  13. BENADRYL [Concomitant]
     Active Substance: DIPHENHYDRAMINE HYDROCHLORIDE
     Indication: Vomiting

REACTIONS (5)
  - Product administration error [Recovered/Resolved]
  - Intentional overdose [Recovered/Resolved]
  - Abdominal discomfort [Recovered/Resolved]
  - Abdominal pain [Recovered/Resolved]
  - Vomiting [Recovered/Resolved]

NARRATIVE: CASE EVENT DATE: 20230213
